FAERS Safety Report 9082022 (Version 2)
Quarter: 2013Q1

REPORT INFORMATION
  Report Type: Spontaneous
  Country: JP (occurrence: JP)
  Receive Date: 20130131
  Receipt Date: 20130311
  Transmission Date: 20140127
  Serious: Yes (Other)
  Sender: FDA-Public Use
  Company Number: JP-JNJFOC-20130108224

PATIENT
  Age: 73 Year
  Sex: Male

DRUGS (4)
  1. DUROTEP MT [Suspect]
     Indication: PAIN
     Route: 062
  2. HALOPERIDOL [Suspect]
     Indication: PRODUCT USED FOR UNKNOWN INDICATION
     Route: 030
  3. RIVOTRIL [Suspect]
     Indication: PRODUCT USED FOR UNKNOWN INDICATION
     Route: 048
  4. VASOLATOR [Concomitant]
     Indication: ANGINA PECTORIS
     Route: 062

REACTIONS (3)
  - Liver disorder [Recovered/Resolved]
  - Hypersomnia [Unknown]
  - Somnolence [Recovered/Resolved]
